FAERS Safety Report 4414670-5 (Version None)
Quarter: 2004Q3

REPORT INFORMATION
  Report Type: 
  Country: None (occurrence: None)
  Receive Date: 20040729
  Receipt Date: 20040715
  Transmission Date: 20050211
  Serious: Yes (Death, Hospitalization)
  Sender: FDA-Public Use
  Company Number: 2004-BP-06094BP

PATIENT
  Age: 82 Year
  Sex: Female

DRUGS (1)
  1. MOBIC [Suspect]
     Dosage: 7.5 MG, PO
     Route: 048
     Dates: start: 20040628

REACTIONS (3)
  - FALL [None]
  - HAEMATOCHEZIA [None]
  - HEAD INJURY [None]
